FAERS Safety Report 18487171 (Version 1)
Quarter: 2020Q4

REPORT INFORMATION
  Report Type: Report from Study
  Country: MX (occurrence: MX)
  Receive Date: 20201110
  Receipt Date: 20201110
  Transmission Date: 20210114
  Serious: Yes (Other)
  Sender: FDA-Public Use
  Company Number: MX-CELGENEUS-MEX-20201101392

PATIENT
  Sex: Male

DRUGS (1)
  1. VIDAZA [Suspect]
     Active Substance: AZACITIDINE
     Indication: MYELODYSPLASTIC SYNDROME
     Dosage: 100 MILLIGRAM
     Route: 065
     Dates: start: 20191105, end: 20201029

REACTIONS (1)
  - Catheter site thrombosis [Recovering/Resolving]

NARRATIVE: CASE EVENT DATE: 20201029
